FAERS Safety Report 7707448-8 (Version None)
Quarter: 2011Q3

REPORT INFORMATION
  Report Type: 
  Country: None (occurrence: None)
  Receive Date: 20110824
  Receipt Date: 20110815
  Transmission Date: 20111222
  Serious: Yes (Other)
  Sender: FDA-Public Use
  Company Number: US-ASTRAZENECA-2010SE24155

PATIENT
  Age: 49 Year
  Sex: Male
  Weight: 90.7 kg

DRUGS (13)
  1. XANAX [Concomitant]
     Indication: ANXIETY
     Route: 065
  2. XANAX [Concomitant]
     Indication: DEPRESSION
     Route: 065
  3. SEROQUEL [Suspect]
     Route: 048
  4. SEROQUEL [Suspect]
     Route: 048
     Dates: start: 20100401
  5. REMERON [Concomitant]
     Route: 065
  6. SEROQUEL [Suspect]
     Route: 048
     Dates: start: 20100401
  7. CYMBALTA [Concomitant]
     Route: 065
  8. SEROQUEL [Suspect]
     Indication: BIPOLAR DISORDER
     Route: 048
     Dates: end: 20100401
  9. SEROQUEL [Suspect]
     Route: 048
  10. SEROQUEL [Suspect]
     Indication: SLEEP DISORDER
     Route: 048
     Dates: end: 20100401
  11. SEROQUEL [Suspect]
     Route: 048
  12. SEROQUEL [Suspect]
     Route: 048
  13. COREG [Concomitant]
     Indication: HYPERTENSION
     Route: 065

REACTIONS (11)
  - LIMB CRUSHING INJURY [None]
  - BACK DISORDER [None]
  - HEARING IMPAIRED [None]
  - LIMB OPERATION [None]
  - EAR INJURY [None]
  - GUN SHOT WOUND [None]
  - ANXIETY [None]
  - DEPRESSION [None]
  - MUSCULOSKELETAL DISCOMFORT [None]
  - INSOMNIA [None]
  - DRUG DOSE OMISSION [None]
